FAERS Safety Report 11409834 (Version 1)
Quarter: 2015Q3

REPORT INFORMATION
  Report Type: Spontaneous
  Country: FR (occurrence: FR)
  Receive Date: 20150824
  Receipt Date: 20150824
  Transmission Date: 20151125
  Serious: Yes (Death, Life-Threatening, Hospitalization)
  Sender: FDA-Public Use
  Company Number: FR-ACCORD-033171

PATIENT
  Age: 54 Year
  Sex: Female

DRUGS (12)
  1. THIAMINE. [Concomitant]
     Active Substance: THIAMINE
     Indication: PRODUCT USED FOR UNKNOWN INDICATION
     Dates: start: 201502
  2. PYRIDOXINE [Concomitant]
     Active Substance: PYRIDOXINE
     Indication: PRODUCT USED FOR UNKNOWN INDICATION
     Dates: start: 201502
  3. EPREX [Concomitant]
     Active Substance: ERYTHROPOIETIN
     Indication: ANAEMIA
     Dates: start: 201502
  4. CISPLATIN ACCORD [Suspect]
     Active Substance: CISPLATIN
     Indication: TONSIL CANCER
     Dosage: 30 MG, 1 IN 1 DAY, SECOND COURSE?20 MG/M?
     Route: 042
     Dates: start: 20150330, end: 20150403
  5. ZOPHREN [Concomitant]
     Active Substance: ONDANSETRON
     Dosage: STRENGTH: 8 MG
     Route: 042
  6. FUMAFER [Concomitant]
     Active Substance: FERROUS FUMARATE
     Indication: PRODUCT USED FOR UNKNOWN INDICATION
     Dates: start: 201502
  7. TIAPRIDAL [Concomitant]
     Active Substance: TIAPRIDE HYDROCHLORIDE
     Indication: PRODUCT USED FOR UNKNOWN INDICATION
     Dates: start: 201502
  8. INEXIUM [Concomitant]
     Active Substance: ESOMEPRAZOLE
     Indication: PRODUCT USED FOR UNKNOWN INDICATION
     Dates: start: 201502
  9. SERESTA [Concomitant]
     Active Substance: OXAZEPAM
     Indication: PRODUCT USED FOR UNKNOWN INDICATION
     Dates: start: 201502
  10. FLUOROURACIL ACCORD [Suspect]
     Active Substance: FLUOROURACIL
     Indication: TONSIL CANCER
     Dosage: 1100 MG, 1 IN 1 DAY, SECOND COURSE?750 MG/M?
     Route: 042
     Dates: start: 20150330, end: 20150403
  11. SOLU-MEDROL [Concomitant]
     Active Substance: METHYLPREDNISOLONE SODIUM SUCCINATE
     Dosage: STRENGTH: 120 MG
     Route: 042
  12. SPECIAFOLDINE [Concomitant]
     Active Substance: FOLIC ACID
     Indication: PRODUCT USED FOR UNKNOWN INDICATION
     Dates: start: 201502

REACTIONS (8)
  - Disseminated intravascular coagulation [Unknown]
  - Bradycardia [Unknown]
  - Metabolic acidosis [Unknown]
  - Delirium [Unknown]
  - Tachycardia [Unknown]
  - Pancytopenia [Unknown]
  - Diarrhoea [Recovered/Resolved]
  - Septic shock [Fatal]

NARRATIVE: CASE EVENT DATE: 20150414
